FAERS Safety Report 4764698-0 (Version None)
Quarter: 2005Q3

REPORT INFORMATION
  Report Type: 
  Country: None (occurrence: None)
  Receive Date: 20050907
  Receipt Date: 20050825
  Transmission Date: 20060218
  Serious: Yes (Hospitalization)
  Sender: FDA-Public Use
  Company Number: S05-USA-04139-01

PATIENT
  Age: 39 Year
  Sex: Male

DRUGS (4)
  1. LEXAPRO [Suspect]
     Indication: DEPRESSION
     Dosage: 20 MG QD PO
     Route: 048
  2. METOPROLOL [Concomitant]
  3. ANTIRETROVIRALS (NOS) [Concomitant]
  4. DAPSONE [Concomitant]

REACTIONS (7)
  - GRAND MAL CONVULSION [None]
  - HYPERTENSION [None]
  - HYPOAESTHESIA [None]
  - LOSS OF CONSCIOUSNESS [None]
  - NERVOUS SYSTEM DISORDER [None]
  - RENAL FAILURE [None]
  - UROSEPSIS [None]
